FAERS Safety Report 10643344 (Version 1)
Quarter: 2014Q4

REPORT INFORMATION
  Report Type: Spontaneous
  Country: US (occurrence: None)
  Receive Date: 20141128
  Receipt Date: 20141128
  Transmission Date: 20150529
  Serious: Yes (Hospitalization)
  Sender: FDA-Public Use
  Company Number: FK201403374

PATIENT
  Sex: Female

DRUGS (2)
  1. PALBOCICLIB [Suspect]
     Active Substance: PALBOCICLIB
     Indication: COLORECTAL CANCER
     Dosage: 150 MG,  7 DAYS ON, 7 DAYS OFF
     Dates: start: 20140610
  2. FLUOROURACIL INJECTION, USP (FLUOROURACIL) (FLUOROURACIL) [Suspect]
     Active Substance: FLUOROURACIL
     Indication: COLORECTAL CANCER
     Dosage: 2400 MG/M2,  2 WK
     Dates: start: 20140617, end: 20140617

REACTIONS (1)
  - Intra-abdominal haemorrhage [None]
